FAERS Safety Report 22391044 (Version 1)
Quarter: 2023Q2

REPORT INFORMATION
  Report Type: Spontaneous
  Country: US (occurrence: None)
  Receive Date: 20230601
  Receipt Date: 20230601
  Transmission Date: 20230721
  Serious: Yes (Hospitalization, Other)
  Sender: FDA-Public Use
  Company Number: US-Unichem Pharmaceuticals (USA) Inc-UCM202305-000668

PATIENT
  Age: 50 Year
  Sex: Male

DRUGS (3)
  1. AMIODARONE HYDROCHLORIDE [Suspect]
     Active Substance: AMIODARONE HYDROCHLORIDE
     Indication: Product used for unknown indication
  2. DIGOXIN [Concomitant]
     Active Substance: DIGOXIN
     Indication: Product used for unknown indication
     Dosage: UNKNOWN
  3. MEXILETINE [Concomitant]
     Active Substance: MEXILETINE
     Indication: Product used for unknown indication
     Dosage: UNKNOWN

REACTIONS (2)
  - N-terminal prohormone brain natriuretic peptide increased [Recovering/Resolving]
  - Hyperthyroidism [Recovering/Resolving]
